FAERS Safety Report 5696445-2 (Version None)
Quarter: 2008Q2

REPORT INFORMATION
  Report Type: 
  Country: None (occurrence: None)
  Receive Date: 20080408
  Receipt Date: 20080310
  Transmission Date: 20081010
  Serious: No
  Sender: FDA-Public Use
  Company Number: US-BOEHRINGER INGELHEIM GMBH, GERMANY-2008-BP-03624BP

PATIENT
  Age: 41 Year
  Sex: Female

DRUGS (1)
  1. AGGRENOX [Suspect]
     Dates: start: 20080225

REACTIONS (2)
  - BURNING SENSATION [None]
  - NAUSEA [None]
